FAERS Safety Report 11381577 (Version 1)
Quarter: 2015Q3

REPORT INFORMATION
  Report Type: Other
  Country: GB (occurrence: GB)
  Receive Date: 20150814
  Receipt Date: 20150814
  Transmission Date: 20151125
  Serious: Yes (Hospitalization)
  Sender: FDA-Public Use
  Company Number: GB-PERRIGO-15GB008322

PATIENT
  Age: 4 Year
  Sex: Male

DRUGS (2)
  1. IBUPROFEN 16028/0027 200 MG [Suspect]
     Active Substance: IBUPROFEN
     Indication: PRODUCT USED FOR UNKNOWN INDICATION
     Dosage: 10MG/KG, UNK
     Route: 065
  2. PARACETAMOL 16028/0012 500 MG [Suspect]
     Active Substance: ACETAMINOPHEN
     Indication: PRODUCT USED FOR UNKNOWN INDICATION
     Dosage: 10MG / KG, UNK
     Route: 065

REACTIONS (5)
  - Cough [Unknown]
  - Lip swelling [Unknown]
  - Rhinitis [Unknown]
  - Periorbital oedema [Unknown]
  - Wheezing [Unknown]

NARRATIVE: CASE EVENT DATE: 20150609
